FAERS Safety Report 6711925-6 (Version None)
Quarter: 2010Q2

REPORT INFORMATION
  Report Type: 
  Country: None (occurrence: None)
  Receive Date: 20100505
  Receipt Date: 20090728
  Transmission Date: 20101027
  Serious: No
  Sender: FDA-Public Use
  Company Number: US-TYCO HEALTHCARE/MALLINCKRODT-T200901428

PATIENT
  Sex: Male

DRUGS (3)
  1. METHADONE HCL [Suspect]
     Indication: PAIN
  2. METHADONE HCL [Suspect]
     Dosage: UNK
     Dates: start: 20090701, end: 20090701
  3. METHADONE HCL [Concomitant]

REACTIONS (6)
  - ABNORMAL DREAMS [None]
  - AGITATION [None]
  - DYSKINESIA [None]
  - MALAISE [None]
  - NAUSEA [None]
  - TREMOR [None]
